FAERS Safety Report 15882584 (Version 1)
Quarter: 2019Q1

REPORT INFORMATION
  Report Type: Spontaneous
  Country: US (occurrence: US)
  Receive Date: 20190129
  Receipt Date: 20190129
  Transmission Date: 20190417
  Serious: No
  Sender: FDA-Public Use
  Company Number: US-AMGEN-USASP2019012575

PATIENT
  Age: 64 Year
  Sex: Female

DRUGS (3)
  1. DHE [Concomitant]
     Dosage: UNK
  2. AIMOVIG [Suspect]
     Active Substance: ERENUMAB-AOOE
     Indication: MIGRAINE PROPHYLAXIS
     Dosage: 70 MG, QMO
     Route: 065
     Dates: start: 201809
  3. BOTOX [Concomitant]
     Active Substance: ONABOTULINUMTOXINA
     Dosage: UNK

REACTIONS (1)
  - Inappropriate schedule of product administration [Unknown]

NARRATIVE: CASE EVENT DATE: 20181101
